FAERS Safety Report 16876218 (Version 1)
Quarter: 2019Q4

REPORT INFORMATION
  Report Type: Spontaneous
  Country: US (occurrence: US)
  Receive Date: 20191002
  Receipt Date: 20191002
  Transmission Date: 20200122
  Serious: Yes (Life-Threatening, Disabling)
  Sender: FDA-Public Use
  Company Number: None

PATIENT
  Age: 43 Year
  Sex: Female
  Weight: 76.5 kg

DRUGS (4)
  1. SYNTHROID [Concomitant]
     Active Substance: LEVOTHYROXINE SODIUM
  2. VITAMIN D [Concomitant]
     Active Substance: VITAMIN D NOS
  3. CALCIUM [Concomitant]
     Active Substance: CALCIUM
  4. NATPARA (PARATHYROID HORMONE) [Suspect]
     Active Substance: PARATHYROID HORMONE

REACTIONS (7)
  - Fine motor skill dysfunction [None]
  - Thinking abnormal [None]
  - Therapeutic product effect decreased [None]
  - Muscle disorder [None]
  - Intentional product use issue [None]
  - Malaise [None]
  - Recalled product administered [None]

NARRATIVE: CASE EVENT DATE: 20190925
